FAERS Safety Report 9920221 (Version 1)
Quarter: 2014Q1

REPORT INFORMATION
  Report Type: Spontaneous
  Country: FR (occurrence: FR)
  Receive Date: 20140224
  Receipt Date: 20140224
  Transmission Date: 20141002
  Serious: Yes (Other)
  Sender: FDA-Public Use
  Company Number: PHHY2014FR019876

PATIENT
  Age: 53 Year
  Sex: Male

DRUGS (5)
  1. TACROLIMUS [Suspect]
     Indication: IMMUNOSUPPRESSANT DRUG THERAPY
     Dosage: 5 MG, PER DAY
  2. TACROLIMUS [Interacting]
     Dosage: 4 MG, PER DAY
  3. PRISTINAMYCIN [Interacting]
     Dosage: 3 G, PER DAY
  4. MYCOPHENOLATE MOFETIL [Concomitant]
     Indication: IMMUNOSUPPRESSANT DRUG THERAPY
     Dosage: 750 MG, PER DAY
  5. PREDNISONE [Concomitant]
     Indication: IMMUNOSUPPRESSANT DRUG THERAPY
     Dosage: 30 MG, PER DAY

REACTIONS (2)
  - Drug interaction [Unknown]
  - Overdose [Recovered/Resolved]
